FAERS Safety Report 18985004 (Version 2)
Quarter: 2021Q4

REPORT INFORMATION
  Report Type: Report from Study
  Country: US (occurrence: US)
  Receive Date: 20210309
  Receipt Date: 20211026
  Transmission Date: 20220303
  Serious: Yes (Hospitalization)
  Sender: FDA-Public Use
  Company Number: US-ACCORD-219341

PATIENT
  Sex: Female

DRUGS (6)
  1. CLOZAPINE [Suspect]
     Active Substance: CLOZAPINE
     Indication: Schizophrenia
     Dosage: IN THE MORNING, 300 MG /ORAL AT BEDTIME
     Route: 048
     Dates: start: 20201019
  2. INVEGA SUSTENNA [Concomitant]
     Active Substance: PALIPERIDONE PALMITATE
  3. PROZAC [Concomitant]
     Active Substance: FLUOXETINE HYDROCHLORIDE
     Dosage: ONCE A DAY
     Route: 048
  4. SEROQUEL [Concomitant]
     Active Substance: QUETIAPINE FUMARATE
     Dosage: ONCE A DAY
  5. OXYBUTYNIN. [Concomitant]
     Active Substance: OXYBUTYNIN CHLORIDE
     Dosage: ONCE A DAY
  6. GABAPENTIN [Concomitant]
     Active Substance: GABAPENTIN
     Dosage: ONE THREE TIMES DAILY
     Route: 048

REACTIONS (2)
  - Psychiatric symptom [Not Recovered/Not Resolved]
  - Malaise [Not Recovered/Not Resolved]
